FAERS Safety Report 9447338 (Version 2)
Quarter: 2013Q3

REPORT INFORMATION
  Report Type: Spontaneous
  Country: US (occurrence: US)
  Receive Date: 20130808
  Receipt Date: 20130819
  Transmission Date: 20140515
  Serious: No
  Sender: FDA-Public Use
  Company Number: US-BIOGENIDEC-2013BI072904

PATIENT
  Age: 64 Year
  Sex: Female

DRUGS (8)
  1. AVONEX [Suspect]
     Indication: MULTIPLE SCLEROSIS
     Route: 030
     Dates: start: 19990401
  2. AVONEX [Suspect]
     Indication: MULTIPLE SCLEROSIS
     Route: 030
     Dates: start: 20070123
  3. AVONEX [Suspect]
     Indication: MULTIPLE SCLEROSIS
     Route: 030
     Dates: end: 20130727
  4. APIDRA [Concomitant]
  5. ASPIRIN [Concomitant]
  6. DILTIAZEM HCL CD [Concomitant]
  7. HYDROCHLORTHIAZIDE [Concomitant]
  8. LANTUS SOLOSTAR [Concomitant]

REACTIONS (9)
  - Fall [Recovered/Resolved]
  - Lower limb fracture [Not Recovered/Not Resolved]
  - Back pain [Unknown]
  - Drug dose omission [Unknown]
  - Back injury [Unknown]
  - Ligament sprain [Unknown]
  - Pain [Not Recovered/Not Resolved]
  - Influenza like illness [Recovered/Resolved]
  - Pain in extremity [Unknown]
